FAERS Safety Report 16812510 (Version 3)
Quarter: 2019Q4

REPORT INFORMATION
  Report Type: Report from Study
  Country: US (occurrence: US)
  Receive Date: 20190916
  Receipt Date: 20191003
  Transmission Date: 20200122
  Serious: Yes (Hospitalization)
  Sender: FDA-Public Use
  Company Number: US-UNITED THERAPEUTICS-UNT-2019-015118

PATIENT
  Age: 5 Year
  Sex: Male
  Weight: 15.4 kg

DRUGS (8)
  1. UNITUXIN [Suspect]
     Active Substance: DINUTUXIMAB
     Dosage: 11.725 MG, DAYS 29-32, CYCLE 2
     Route: 041
     Dates: start: 20190829, end: 20190902
  2. UNITUXIN [Suspect]
     Active Substance: DINUTUXIMAB
     Indication: NEUROBLASTOMA
     Dosage: 11.7 MG, TOTAL DAILY DOSE, CYCLE 1
     Route: 041
     Dates: start: 20190619, end: 20190714
  3. IOBENGUANE (131 I) [Suspect]
     Active Substance: IOBENGUANE I-131
     Dosage: 247 MCI, QD
     Route: 041
  4. SARGRAMOSTIM [Suspect]
     Active Substance: SARGRAMOSTIM
     Indication: NEUROBLASTOMA
     Dosage: 167.5 ?G, QD
     Route: 058
     Dates: start: 20190828
  5. FLUDROCORTISONE ACETATE. [Concomitant]
     Active Substance: FLUDROCORTISONE ACETATE
     Indication: ADRENAL INSUFFICIENCY
     Dosage: 0.1 MG, QD
     Route: 048
     Dates: start: 20190529
  6. SULFAMETHOXAZOLE;TRIMETHOPRIM [Concomitant]
     Active Substance: SULFAMETHOXAZOLE\TRIMETHOPRIM
     Indication: PROPHYLAXIS
     Dosage: 5 ML, FOR 28 DAYS
     Route: 048
     Dates: start: 20190702
  7. IOBENGUANE (131 I) [Suspect]
     Active Substance: IOBENGUANE I-131
     Indication: NEUROBLASTOMA
     Dosage: 245.9 MCI, QD, CYCLE 2
     Route: 041
     Dates: start: 20190823, end: 20190823
  8. POTASSIUM IODIDE. [Suspect]
     Active Substance: POTASSIUM IODIDE
     Indication: NEUROBLASTOMA
     Dosage: 15.6 MG, QD
     Route: 048
     Dates: start: 20190613

REACTIONS (2)
  - Dehydration [Recovered/Resolved]
  - Pyrexia [Recovered/Resolved]

NARRATIVE: CASE EVENT DATE: 20190905
